FAERS Safety Report 5271718-6 (Version None)
Quarter: 2007Q1

REPORT INFORMATION
  Report Type: 
  Country: None (occurrence: None)
  Receive Date: 20070316
  Receipt Date: 20070305
  Transmission Date: 20070707
  Serious: Yes (Death, Other)
  Sender: FDA-Public Use
  Company Number: 2007US-06196

PATIENT
  Age: 17 Year
  Sex: Male

DRUGS (5)
  1. ISOTRETINOIN [Suspect]
     Indication: ACNE CYSTIC
     Dosage: SEE IMAGE
     Route: 048
     Dates: start: 20061030, end: 20061128
  2. ISOTRETINOIN [Suspect]
     Indication: ACNE CYSTIC
     Dosage: SEE IMAGE
     Route: 048
     Dates: start: 20061129
  3. ALBUTEROL [Concomitant]
  4. QVAR 40 [Concomitant]
  5. OMEPRAZOLE [Concomitant]

REACTIONS (2)
  - CHEST INJURY [None]
  - GUN SHOT WOUND [None]
